FAERS Safety Report 14756596 (Version 1)
Quarter: 2018Q2

REPORT INFORMATION
  Report Type: Spontaneous
  Country: RU (occurrence: RU)
  Receive Date: 20180413
  Receipt Date: 20180413
  Transmission Date: 20180711
  Serious: Yes (Hospitalization)
  Sender: FDA-Public Use
  Company Number: RU-AMGEN-RUSSP2018042220

PATIENT
  Age: 39 Year
  Sex: Female

DRUGS (1)
  1. ENBREL [Suspect]
     Active Substance: ETANERCEPT
     Indication: RHEUMATOID ARTHRITIS
     Dosage: 50 MG, WEEKLY
     Route: 065
     Dates: start: 2017, end: 201803

REACTIONS (4)
  - Pruritus generalised [Not Recovered/Not Resolved]
  - Nasal congestion [Not Recovered/Not Resolved]
  - Splenomegaly [Not Recovered/Not Resolved]
  - Bronchiolitis [Recovering/Resolving]

NARRATIVE: CASE EVENT DATE: 201803
